FAERS Safety Report 7483813-1 (Version None)
Quarter: 2011Q2

REPORT INFORMATION
  Report Type: 
  Country: None (occurrence: None)
  Receive Date: 20110509
  Receipt Date: 20110423
  Transmission Date: 20111010
  Serious: Yes (Hospitalization)
  Sender: FDA-Public Use
  Company Number: 031990

PATIENT
  Sex: Female

DRUGS (10)
  1. LOXOPROFEN SODIUM [Concomitant]
  2. CANDESARTAN CILEXETIL [Concomitant]
  3. AZULENE SODIUM SULFONATE [Concomitant]
  4. CIMZIA [Suspect]
     Indication: RHEUMATOID ARTHRITIS
     Dosage: (200 MG 1X/2 WEEKS SUBCUTANEOUS)
     Route: 058
     Dates: start: 20091112
  5. FEXOFENADINE HCL [Concomitant]
  6. MANIDIPINE HYDROCHLORIDE [Concomitant]
  7. CALCITRIOL [Concomitant]
  8. L-GLUTAMINE /00900601/ [Concomitant]
  9. BUCILLAMINE [Concomitant]
  10. FLUVASTATIN SODIUM [Concomitant]

REACTIONS (6)
  - CONDITION AGGRAVATED [None]
  - PNEUMOCYSTIS JIROVECI PNEUMONIA [None]
  - INTERSTITIAL LUNG DISEASE [None]
  - OXYGEN SATURATION DECREASED [None]
  - COMPUTERISED TOMOGRAM ABNORMAL [None]
  - CHEST X-RAY ABNORMAL [None]
